FAERS Safety Report 9656849 (Version 1)
Quarter: 2013Q4

REPORT INFORMATION
  Report Type: Spontaneous
  Country: RW (occurrence: None)
  Receive Date: 20131028
  Receipt Date: 20131028
  Transmission Date: 20140711
  Serious: Yes (Other)
  Sender: FDA-Public Use
  Company Number: SYM-2013-11952

PATIENT
  Age: 33 Year
  Sex: Female

DRUGS (2)
  1. FLAGYL [Suspect]
     Indication: TRICHOMONIASIS
     Route: 048
     Dates: start: 20131006
  2. SELEXID (PIVMECILLINA, HYDROCHLORIDE) (PIVMECILLINAM HYDROCHLORIDE) [Concomitant]

REACTIONS (2)
  - Abortion [None]
  - Exposure during pregnancy [None]
